FAERS Safety Report 5028753-2 (Version None)
Quarter: 2006Q2

REPORT INFORMATION
  Report Type: 
  Country: None (occurrence: None)
  Receive Date: 20060619
  Receipt Date: 20041102
  Transmission Date: 20061013
  Serious: No
  Sender: FDA-Public Use
  Company Number: US-BRISTOL-MYERS SQUIBB COMPANY-12754719

PATIENT
  Age: 63 Year
  Sex: Male
  Weight: 93 kg

DRUGS (2)
  1. MUTAMYCIN [Suspect]
     Indication: BLADDER CANCER
     Route: 043
     Dates: start: 20040801, end: 20040801
  2. ANTIBIOTIC [Concomitant]

REACTIONS (2)
  - BLADDER PAIN [None]
  - POLLAKIURIA [None]
